FAERS Safety Report 9835070 (Version 1)
Quarter: 2014Q1

REPORT INFORMATION
  Report Type: Spontaneous
  Country: TR (occurrence: TR)
  Receive Date: 20140122
  Receipt Date: 20140122
  Transmission Date: 20141002
  Serious: Yes (Other)
  Sender: FDA-Public Use
  Company Number: TR-JNJFOC-20140107649

PATIENT
  Age: 13 Year
  Sex: Male

DRUGS (2)
  1. RISPERIDONE [Suspect]
     Indication: DEPRESSION
     Route: 065
  2. SERTRALINE [Suspect]
     Indication: DEPRESSION
     Route: 065

REACTIONS (1)
  - Gastrointestinal haemorrhage [Unknown]
